FAERS Safety Report 8596902-5 (Version None)
Quarter: 2012Q3

REPORT INFORMATION
  Report Type: 
  Country: None (occurrence: None)
  Receive Date: 20120815
  Receipt Date: 20120808
  Transmission Date: 20120928
  Serious: Yes (Other)
  Sender: FDA-Public Use
  Company Number: PHHY2012US068985

PATIENT
  Age: 55 Year
  Sex: Female

DRUGS (3)
  1. RIBAVIRIN [Suspect]
     Indication: HEPATITIS C
  2. PEGINTERFERON ALFA-2A [Suspect]
     Indication: HEPATITIS C
  3. INCIVEK [Suspect]
     Indication: HEPATITIS C

REACTIONS (11)
  - THROMBOCYTOPENIA [None]
  - PYREXIA [None]
  - ERYTHEMA [None]
  - HEPATITIS C [None]
  - RASH PRURITIC [None]
  - DRUG RASH WITH EOSINOPHILIA AND SYSTEMIC SYMPTOMS [None]
  - MYALGIA [None]
  - SKIN PLAQUE [None]
  - CHILLS [None]
  - YELLOW SKIN [None]
  - STAPHYLOCOCCAL BACTERAEMIA [None]
